FAERS Safety Report 18201746 (Version 1)
Quarter: 2020Q3

REPORT INFORMATION
  Report Type: Spontaneous
  Country: US (occurrence: US)
  Receive Date: 20200826
  Receipt Date: 20200826
  Transmission Date: 20201103
  Serious: No
  Sender: FDA-Public Use
  Company Number: None

PATIENT
  Age: 62 Year
  Sex: Female
  Weight: 46.35 kg

DRUGS (24)
  1. NITRPOGLYCERINE [Concomitant]
  2. UBREVLY [Concomitant]
  3. GABAPENTIN. [Concomitant]
     Active Substance: GABAPENTIN
  4. LIDOCAINE PATCH [Concomitant]
     Active Substance: LIDOCAINE
  5. CALCIUM [Concomitant]
     Active Substance: CALCIUM
  6. AIMOVIG [Concomitant]
     Active Substance: ERENUMAB-AOOE
  7. TOFACITINIB [Concomitant]
     Active Substance: TOFACITINIB
  8. ASPIRIN. [Concomitant]
     Active Substance: ASPIRIN
  9. ESTRADIOL. [Concomitant]
     Active Substance: ESTRADIOL
  10. ENTYVIO [Concomitant]
     Active Substance: VEDOLIZUMAB
  11. AMBIEN [Concomitant]
     Active Substance: ZOLPIDEM TARTRATE
  12. MESALAMINE. [Concomitant]
     Active Substance: MESALAMINE
  13. TESTOSTERONE. [Concomitant]
     Active Substance: TESTOSTERONE
  14. OXYBUTYNIN. [Concomitant]
     Active Substance: OXYBUTYNIN CHLORIDE
  15. AMLODIPINE [Concomitant]
     Active Substance: AMLODIPINE BESYLATE
  16. BUPRENORPHINE(BUTRANS) [Concomitant]
  17. ESCITALOPRAM [Concomitant]
     Active Substance: ESCITALOPRAM OXALATE
  18. MAGNESIUM CHLORIDE DR EC [Concomitant]
  19. VITAMIN D [Concomitant]
     Active Substance: VITAMIN D NOS
  20. ELMIRON [Suspect]
     Active Substance: PENTOSAN POLYSULFATE SODIUM
     Indication: CYSTITIS INTERSTITIAL
     Dosage: ?          QUANTITY:2 TABLET(S);?
     Route: 048
  21. TENORMIN [Concomitant]
     Active Substance: ATENOLOL
  22. CAMBIA [Concomitant]
     Active Substance: DICLOFENAC POTASSIUM
  23. OXYCODONE?ACETAMINOPHEN [Concomitant]
     Active Substance: ACETAMINOPHEN\OXYCODONE HYDROCHLORIDE
  24. NICOTINAMIDE [Concomitant]
     Active Substance: NIACINAMIDE

REACTIONS (4)
  - Maculopathy [None]
  - Retinal pigment epitheliopathy [None]
  - Retinal deposits [None]
  - Toxicity to various agents [None]

NARRATIVE: CASE EVENT DATE: 20200101
